FAERS Safety Report 20946885 (Version 2)
Quarter: 2022Q2

REPORT INFORMATION
  Report Type: Spontaneous
  Country: US (occurrence: US)
  Receive Date: 20220610
  Receipt Date: 20220618
  Transmission Date: 20220720
  Serious: Yes (Other)
  Sender: FDA-Public Use
  Company Number: US-JNJFOC-20220607455

PATIENT

DRUGS (15)
  1. DARZALEX [Suspect]
     Active Substance: DARATUMUMAB
     Indication: Plasma cell myeloma
     Route: 065
     Dates: start: 20170323, end: 20170922
  2. DARZALEX [Suspect]
     Active Substance: DARATUMUMAB
     Route: 065
     Dates: start: 20190711, end: 20190927
  3. DARZALEX [Suspect]
     Active Substance: DARATUMUMAB
     Route: 065
     Dates: start: 20190927, end: 20191218
  4. DARZALEX [Suspect]
     Active Substance: DARATUMUMAB
     Route: 065
     Dates: start: 20200207, end: 20200306
  5. DARZALEX [Suspect]
     Active Substance: DARATUMUMAB
     Route: 065
     Dates: start: 20220323, end: 20220518
  6. VELCADE [Suspect]
     Active Substance: BORTEZOMIB
     Indication: Plasma cell myeloma
     Route: 065
     Dates: start: 20170323, end: 20170922
  7. VELCADE [Suspect]
     Active Substance: BORTEZOMIB
     Route: 065
     Dates: start: 20190711, end: 20190927
  8. VELCADE [Suspect]
     Active Substance: BORTEZOMIB
     Route: 065
     Dates: start: 20220323, end: 20220518
  9. DEXAMETHASONE [Suspect]
     Active Substance: DEXAMETHASONE
     Indication: Plasma cell myeloma
     Route: 065
     Dates: start: 20170323, end: 20170922
  10. DEXAMETHASONE [Suspect]
     Active Substance: DEXAMETHASONE
     Route: 065
     Dates: start: 20171005, end: 20180606
  11. DEXAMETHASONE [Suspect]
     Active Substance: DEXAMETHASONE
     Route: 065
     Dates: start: 20190711, end: 20190920
  12. POMALIDOMIDE [Suspect]
     Active Substance: POMALIDOMIDE
     Indication: Plasma cell myeloma
     Route: 065
     Dates: start: 20190226, end: 20190711
  13. POMALIDOMIDE [Suspect]
     Active Substance: POMALIDOMIDE
     Route: 065
     Dates: start: 20190711, end: 20190920
  14. XPOVIO [Suspect]
     Active Substance: SELINEXOR
     Indication: Plasma cell myeloma
     Route: 065
     Dates: start: 20190927, end: 20191218
  15. XPOVIO [Suspect]
     Active Substance: SELINEXOR
     Route: 065
     Dates: start: 20200121, end: 20200302

REACTIONS (2)
  - Plasma cell myeloma [Unknown]
  - Gastrointestinal disorder [Unknown]
